FAERS Safety Report 9112630 (Version 2)
Quarter: 2013Q1

REPORT INFORMATION
  Report Type: Report from Study
  Country: US (occurrence: US)
  Receive Date: 20130211
  Receipt Date: 20130225
  Transmission Date: 20140127
  Serious: No
  Sender: FDA-Public Use
  Company Number: US-VERTEX PHARMACEUTICALS INC.-2013-001772

PATIENT
  Age: 43 None
  Sex: Male
  Weight: 91 kg

DRUGS (11)
  1. VX-950 (TELAPREVIR) [Suspect]
     Indication: HEPATITIS C
     Dosage: 750 MG, TID
     Route: 048
     Dates: start: 20121203
  2. RIBAVIRIN [Suspect]
     Indication: HEPATITIS C
     Dosage: 600 MG, BID
     Dates: start: 20121203
  3. PEGASYS [Suspect]
     Indication: HEPATITIS C
     Dosage: 180 ?G, WEEKLY
     Route: 058
     Dates: start: 20121203
  4. WELLBUTRIN [Concomitant]
     Indication: DEPRESSION
  5. GEODON [Concomitant]
  6. PAXIL [Concomitant]
     Dosage: 20 MG, QD
  7. OMEPRAZOLE [Concomitant]
     Dosage: 20 MG, QD
  8. ATENOLOL [Concomitant]
     Dosage: 50 MG, QD
  9. METFORMIN [Concomitant]
  10. SPIRIVA [Concomitant]
  11. RELPAX [Concomitant]

REACTIONS (2)
  - Rash macular [Not Recovered/Not Resolved]
  - Pruritus [Unknown]
